FAERS Safety Report 7638847-0 (Version None)
Quarter: 2011Q3

REPORT INFORMATION
  Report Type: 
  Country: None (occurrence: None)
  Receive Date: 20110721
  Receipt Date: 20110714
  Transmission Date: 20111222
  Serious: Yes (Death)
  Sender: FDA-Public Use
  Company Number: DSA_47183_2011

PATIENT
  Sex: Female

DRUGS (8)
  1. GLIPIZIDE [Concomitant]
  2. MULTI-VITAMINS [Concomitant]
  3. FERREX [Concomitant]
  4. XENAZINE [Suspect]
     Indication: HUNTINGTON'S DISEASE
     Dosage: (25 MG TID ORAL)
     Route: 048
  5. METFORMIN HCL [Concomitant]
  6. LEXAPRO [Concomitant]
  7. ASPIRIN [Concomitant]
  8. FAMOTIDINE [Concomitant]

REACTIONS (1)
  - DEATH [None]
